FAERS Safety Report 11718596 (Version 1)
Quarter: 2015Q4

REPORT INFORMATION
  Report Type: Other
  Country: US (occurrence: US)
  Receive Date: 20151109
  Receipt Date: 20151109
  Transmission Date: 20160304
  Serious: Yes (Hospitalization)
  Sender: FDA-Public Use
  Company Number: US-WALMART-1043950

PATIENT
  Sex: Female

DRUGS (1)
  1. EQUATE DOCUSATE SODIUM SINGLE TONE [Suspect]
     Active Substance: DOCUSATE SODIUM
     Indication: CONSTIPATION
     Route: 048
     Dates: start: 20151021, end: 20151021

REACTIONS (2)
  - Throat irritation [Recovered/Resolved]
  - Foreign body [None]

NARRATIVE: CASE EVENT DATE: 20151021
